FAERS Safety Report 11936353 (Version 3)
Quarter: 2016Q1

REPORT INFORMATION
  Report Type: Report from Study
  Country: CA (occurrence: CA)
  Receive Date: 20160121
  Receipt Date: 20160330
  Transmission Date: 20160526
  Serious: Yes (Hospitalization, Other)
  Sender: FDA-Public Use
  Company Number: CA-ABBVIE-15K-028-1373616-00

PATIENT
  Sex: Male
  Weight: 54.48 kg

DRUGS (4)
  1. HUMIRA [Suspect]
     Active Substance: ADALIMUMAB
     Indication: CROHN^S DISEASE
     Route: 058
     Dates: start: 20110628, end: 2014
  2. COUMADIN [Concomitant]
     Active Substance: WARFARIN SODIUM
     Indication: AORTIC VALVE REPLACEMENT
     Route: 048
  3. HUMIRA [Suspect]
     Active Substance: ADALIMUMAB
     Route: 058
     Dates: start: 20160321
  4. PREDNISONE. [Concomitant]
     Active Substance: PREDNISONE
     Indication: PRODUCT USED FOR UNKNOWN INDICATION

REACTIONS (9)
  - Aphasia [Recovered/Resolved]
  - Nephrolithiasis [Recovering/Resolving]
  - Cerebrovascular accident [Recovered/Resolved]
  - Post procedural complication [Unknown]
  - Ischaemic stroke [Recovered/Resolved]
  - Drug effect incomplete [Not Recovered/Not Resolved]
  - Embolic stroke [Recovered/Resolved]
  - Cerebrovascular accident [Unknown]
  - Renal haemorrhage [Unknown]
